FAERS Safety Report 21081446 (Version 1)
Quarter: 2022Q3

REPORT INFORMATION
  Report Type: Spontaneous
  Country: CN (occurrence: CN)
  Receive Date: 20220714
  Receipt Date: 20220714
  Transmission Date: 20221026
  Serious: Yes (Other)
  Sender: FDA-Public Use
  Company Number: None

PATIENT
  Age: 59 Year
  Sex: Female
  Weight: 68 kg

DRUGS (5)
  1. CYCLOPHOSPHAMIDE [Suspect]
     Active Substance: CYCLOPHOSPHAMIDE
     Indication: Breast cancer female
     Dosage: 950.000000MG ONCE DAILY, CYCLOPHOSPHAMIDE WAS DILUTED WITH SODIUM CHLORIDE
     Route: 042
     Dates: start: 20220518, end: 20220518
  2. SODIUM CHLORIDE [Suspect]
     Active Substance: SODIUM CHLORIDE
     Indication: Medication dilution
     Dosage: 50 ML, QD, CYCLOPHOSPHAMIDE WAS DILUTED WITH SODIUM CHLORIDE.
     Route: 042
     Dates: start: 20220518, end: 20220518
  3. SODIUM CHLORIDE [Suspect]
     Active Substance: SODIUM CHLORIDE
     Dosage: 100 UNK, EPIRUBICIN HYDROCHLORIDE WAS DILUTED WITH SODIUM CHLORIDE
     Route: 041
     Dates: start: 20220518, end: 20220518
  4. EPIRUBICIN [Suspect]
     Active Substance: EPIRUBICIN
     Indication: Breast cancer female
     Dosage: 136.000000MG ONCE DAILY, EPIRUBICIN HYDROCHLORIDE WAS DILUTED WITH SODIUM CHLORIDE
     Route: 041
     Dates: start: 20220518, end: 20220518
  5. AI DUO [Concomitant]
     Indication: Product used for unknown indication
     Dosage: 6 MG, ON THE THIRD DAY
     Route: 058

REACTIONS (2)
  - White blood cell count decreased [Recovered/Resolved]
  - Agranulocytosis [Recovered/Resolved]

NARRATIVE: CASE EVENT DATE: 20220525
